FAERS Safety Report 4891964-0 (Version None)
Quarter: 2006Q1

REPORT INFORMATION
  Report Type: 
  Country: None (occurrence: None)
  Receive Date: 20060124
  Receipt Date: 20060110
  Transmission Date: 20060701
  Serious: Yes (Death)
  Sender: FDA-Public Use
  Company Number: 221050

PATIENT
  Age: 46 Year
  Sex: Male

DRUGS (9)
  1. AVASTIN [Suspect]
     Indication: SQUAMOUS CELL CARCINOMA
  2. TRIAMCINOLONE ACETONIDE [Concomitant]
  3. DEXAMETHASONE [Concomitant]
  4. MEGACE [Concomitant]
  5. MELATONIN (MELATONIN) [Concomitant]
  6. OXY NOS (BENZOYL PEROXIDE) [Concomitant]
  7. MULTIVITAMIN (MULTIVITAMINS NOS) [Concomitant]
  8. CYMBALTA [Concomitant]
  9. HYDROMORPHONE (HYDROMORPHONE HYDROCHLORIDE) [Concomitant]

REACTIONS (6)
  - ASTHENIA [None]
  - BLOOD GLUCOSE INCREASED [None]
  - DYSPNOEA EXERTIONAL [None]
  - NEUTROPHIL COUNT INCREASED [None]
  - PLATELET COUNT INCREASED [None]
  - PULMONARY HAEMORRHAGE [None]
